FAERS Safety Report 5224439-X (Version None)
Quarter: 2007Q1

REPORT INFORMATION
  Report Type: 
  Country: None (occurrence: None)
  Receive Date: 20070126
  Receipt Date: 20070112
  Transmission Date: 20070707
  Serious: Yes (Hospitalization)
  Sender: FDA-Public Use
  Company Number: 2006001876

PATIENT
  Age: 88 Year
  Sex: Male

DRUGS (8)
  1. ERLOTINIB (TABLET) [Suspect]
     Indication: PROSTATE CANCER
     Dosage: 150 MG QD, ORAL
     Route: 048
     Dates: start: 20060522
  2. SYNTHROID [Concomitant]
  3. HUMULIN (NOVOLIN 20/80) [Concomitant]
  4. FUROSEMIDE [Concomitant]
  5. COREG [Concomitant]
  6. LISINOPRIL [Concomitant]
  7. FERROUS SULFATE TAB [Concomitant]
  8. LEUPROLIDE ACETATE [Concomitant]

REACTIONS (13)
  - BLOOD CALCIUM DECREASED [None]
  - BLOOD CREATINE INCREASED [None]
  - BLOOD GLUCOSE INCREASED [None]
  - CARDIAC FAILURE CONGESTIVE [None]
  - HAEMOGLOBIN DECREASED [None]
  - LUNG INFILTRATION [None]
  - NAUSEA [None]
  - PLEURAL EFFUSION [None]
  - PULMONARY OEDEMA [None]
  - RED BLOOD CELL COUNT DECREASED [None]
  - RESPIRATORY ARREST [None]
  - RESPIRATORY RATE DECREASED [None]
  - VOMITING [None]
